FAERS Safety Report 6801200-3 (Version None)
Quarter: 2010Q2

REPORT INFORMATION
  Report Type: 
  Country: None (occurrence: None)
  Receive Date: 20100629
  Receipt Date: 20100618
  Transmission Date: 20101027
  Serious: Yes (Other)
  Sender: FDA-Public Use
  Company Number: GB-PFIZER INC-2010076797

PATIENT
  Sex: Male

DRUGS (2)
  1. CHAMPIX [Suspect]
  2. METHOTREXATE SODIUM [Interacting]
     Indication: PSORIASIS

REACTIONS (3)
  - DRUG INTERACTION [None]
  - IMMUNOSUPPRESSANT DRUG LEVEL DECREASED [None]
  - PSORIASIS [None]
